FAERS Safety Report 10077683 (Version 1)
Quarter: 2014Q2

REPORT INFORMATION
  Report Type: Spontaneous
  Country: PL (occurrence: PL)
  Receive Date: 20140414
  Receipt Date: 20140414
  Transmission Date: 20141212
  Serious: Yes (Hospitalization)
  Sender: FDA-Public Use
  Company Number: PL-TEVA-473428ISR

PATIENT
  Age: 91 Month
  Sex: Male

DRUGS (1)
  1. EQUORAL [Suspect]
     Indication: JUVENILE IDIOPATHIC ARTHRITIS
     Dosage: 40 MILLIGRAM DAILY;
     Route: 048
     Dates: start: 2010, end: 2010

REACTIONS (3)
  - Drug level increased [Recovered/Resolved]
  - Blood creatinine increased [Recovered/Resolved]
  - Renal failure acute [Recovered/Resolved]
